FAERS Safety Report 7417620-2 (Version None)
Quarter: 2011Q2

REPORT INFORMATION
  Report Type: 
  Country: None (occurrence: None)
  Receive Date: 20110415
  Receipt Date: 20110404
  Transmission Date: 20111010
  Serious: Yes (Other)
  Sender: FDA-Public Use
  Company Number: PHFR2011GB02339

PATIENT
  Sex: Male

DRUGS (1)
  1. CLOZARIL [Suspect]
     Indication: SCHIZOPHRENIA
     Dosage: 200 MG, UNK
     Route: 048
     Dates: start: 20040318

REACTIONS (5)
  - PAIN IN EXTREMITY [None]
  - PARAESTHESIA [None]
  - CONFUSIONAL STATE [None]
  - IRRITABLE BOWEL SYNDROME [None]
  - URINARY INCONTINENCE [None]
